FAERS Safety Report 17899615 (Version 1)
Quarter: 2020Q2

REPORT INFORMATION
  Report Type: Spontaneous
  Country: GB (occurrence: GB)
  Receive Date: 20200616
  Receipt Date: 20200616
  Transmission Date: 20200714
  Serious: Yes (Hospitalization, Other)
  Sender: FDA-Public Use
  Company Number: GB-TEVA-2020-GB-1247734

PATIENT
  Age: 75 Year
  Sex: Female
  Weight: 67 kg

DRUGS (8)
  1. DOCUSATE SODIUM. [Concomitant]
     Active Substance: DOCUSATE SODIUM
  2. CASSIA [Concomitant]
  3. MOVICOL [Concomitant]
     Active Substance: POLYETHYLENE GLYCOL 3350\POTASSIUM CHLORIDE\SODIUM BICARBONATE\SODIUM CHLORIDE
  4. ALENDRONIC ACID [Suspect]
     Active Substance: ALENDRONIC ACID
     Indication: OSTEOPOROTIC FRACTURE
     Dosage: 70 MG
     Route: 048
     Dates: start: 201411
  5. GABAPENTIN. [Concomitant]
     Active Substance: GABAPENTIN
  6. PARACETAMOL [Concomitant]
     Active Substance: ACETAMINOPHEN
  7. CALCI-D [Concomitant]
     Active Substance: CALCIUM CARBONATE\CHOLECALCIFEROL
  8. RAMIPRIL. [Concomitant]
     Active Substance: RAMIPRIL

REACTIONS (1)
  - Atypical fracture [Recovered/Resolved with Sequelae]

NARRATIVE: CASE EVENT DATE: 20191003
